FAERS Safety Report 18142328 (Version 8)
Quarter: 2024Q3

REPORT INFORMATION
  Report Type: Spontaneous
  Country: ES (occurrence: ES)
  Receive Date: 20200813
  Receipt Date: 20240913
  Transmission Date: 20241016
  Serious: Yes (Hospitalization)
  Sender: ROCHE
  Company Number: ES-LSSRM-2020-ES-1809860

PATIENT
  Age: 53 Year
  Sex: Female

DRUGS (17)
  1. MYCOPHENOLATE MOFETIL [Suspect]
     Active Substance: MYCOPHENOLATE MOFETIL
     Indication: Immunosuppressant drug therapy
     Route: 065
  2. MYCOPHENOLATE MOFETIL [Suspect]
     Active Substance: MYCOPHENOLATE MOFETIL
     Indication: Renal transplant
  3. ENVARSUS XR [Suspect]
     Active Substance: TACROLIMUS
     Indication: Immunosuppressant drug therapy
     Route: 065
  4. ENVARSUS XR [Suspect]
     Active Substance: TACROLIMUS
     Indication: Renal transplant
  5. AMPHOTERICIN B [Suspect]
     Active Substance: AMPHOTERICIN B
     Indication: Emphysematous pyelonephritis
     Dosage: UNK
     Route: 065
  6. EMPAGLIFLOZIN [Suspect]
     Active Substance: EMPAGLIFLOZIN
     Indication: Diabetes mellitus
     Route: 065
  7. PREDNISONE [Suspect]
     Active Substance: PREDNISONE
     Indication: Immunosuppressant drug therapy
     Route: 065
  8. METHYLPREDNISOLONE [Suspect]
     Active Substance: METHYLPREDNISOLONE
     Indication: Immunosuppressant drug therapy
     Route: 042
  9. METHYLPREDNISOLONE [Suspect]
     Active Substance: METHYLPREDNISOLONE
     Indication: Renal transplant
     Route: 065
  10. THYMOGLOBULIN [Suspect]
     Active Substance: LAPINE T-LYMPHOCYTE IMMUNE GLOBULIN
     Indication: Renal transplant
     Route: 065
  11. THYMOGLOBULIN [Suspect]
     Active Substance: LAPINE T-LYMPHOCYTE IMMUNE GLOBULIN
     Indication: Immunosuppressant drug therapy
     Route: 065
  12. METHYLPREDNISOLONE HEMISUCCINATE [Suspect]
     Active Substance: METHYLPREDNISOLONE HEMISUCCINATE
     Indication: Renal transplant
     Route: 065
  13. AMPHOTERICIN B [Suspect]
     Active Substance: AMPHOTERICIN B
     Indication: Candida infection
     Route: 065
  14. CASPOFUNGIN [Suspect]
     Active Substance: CASPOFUNGIN
     Indication: Candida infection
     Route: 065
  15. INSULIN NOS [Concomitant]
     Active Substance: INSULIN NOS
     Indication: Diabetes mellitus
     Route: 065
  16. MEROPENEM [Concomitant]
     Active Substance: MEROPENEM
     Indication: Product used for unknown indication
  17. PIPERACILLIN AND TAZOBACTAM [Concomitant]
     Active Substance: PIPERACILLIN SODIUM\TAZOBACTAM SODIUM
     Indication: Evidence based treatment
     Route: 065

REACTIONS (26)
  - Candida sepsis [Recovered/Resolved]
  - Systemic candida [Recovered/Resolved]
  - Abdominal pain [Recovering/Resolving]
  - Tenderness [Recovering/Resolving]
  - Pyrexia [Recovered/Resolved]
  - Coagulation test abnormal [Recovered/Resolved]
  - Hypotension [Recovered/Resolved]
  - Pyelonephritis fungal [Recovering/Resolving]
  - Septic shock [Recovered/Resolved]
  - Renal impairment [Unknown]
  - Urinary tract candidiasis [Recovered/Resolved]
  - Malaise [Recovering/Resolving]
  - Tachycardia [Recovering/Resolving]
  - Pyelonephritis acute [Recovering/Resolving]
  - Candida infection [Recovered/Resolved]
  - Chills [Recovering/Resolving]
  - Vesicoureteric reflux [Unknown]
  - Coagulopathy [Recovered/Resolved]
  - Emphysematous pyelonephritis [Recovering/Resolving]
  - Urinary tract infection enterococcal [Recovered/Resolved]
  - Pain [Recovering/Resolving]
  - Perinephric abscess [Recovered/Resolved]
  - Oliguria [Unknown]
  - Pyuria [Recovered/Resolved]
  - Dysuria [Unknown]
  - Product use in unapproved indication [Unknown]
